FAERS Safety Report 5016344-9 (Version None)
Quarter: 2006Q2

REPORT INFORMATION
  Report Type: 
  Country: None (occurrence: None)
  Receive Date: 20060414
  Receipt Date: 20060307
  Transmission Date: 20061013
  Serious: Yes (Other)
  Sender: FDA-Public Use
  Company Number: 2006020293

PATIENT
  Age: 87 Year
  Sex: Male

DRUGS (9)
  1. MACUGEN [Suspect]
     Indication: CHOROIDAL NEOVASCULARISATION
     Dosage: (0.3 MG)
     Dates: start: 20050421
  2. MACUGEN [Suspect]
     Indication: MACULAR DEGENERATION
     Dosage: (0.3 MG)
     Dates: start: 20050421
  3. LASIX [Concomitant]
  4. ZOCOR [Concomitant]
  5. K-DUR (POTASSIJUM CHLORIDE) [Concomitant]
  6. ATIVAN [Concomitant]
  7. ASPIRIN [Concomitant]
  8. DITROPAN [Concomitant]
  9. FUROSEMIDE [Concomitant]

REACTIONS (2)
  - FACE OEDEMA [None]
  - RASH MACULO-PAPULAR [None]
